FAERS Safety Report 9346629 (Version 1)
Quarter: 2013Q2

REPORT INFORMATION
  Report Type: Spontaneous
  Country: US (occurrence: US)
  Receive Date: 20130613
  Receipt Date: 20130613
  Transmission Date: 20140414
  Serious: Yes (Other)
  Sender: FDA-Public Use
  Company Number: US-BAYER-2013-072692

PATIENT
  Age: 45 Year
  Sex: Female

DRUGS (2)
  1. ALEVE CAPLET [Suspect]
     Indication: MYALGIA
  2. VENOFER [Suspect]
     Dosage: 300 MG, OVER 4 HOURS
     Route: 042

REACTIONS (2)
  - Loss of consciousness [None]
  - Urticaria [None]
